FAERS Safety Report 5884898-6 (Version None)
Quarter: 2008Q3

REPORT INFORMATION
  Report Type: 
  Country: None (occurrence: None)
  Receive Date: 20080916
  Receipt Date: 20080905
  Transmission Date: 20090109
  Serious: Yes (Life-Threatening)
  Sender: FDA-Public Use
  Company Number: BE-ROCHE-585195

PATIENT
  Age: 60 Year
  Sex: Male

DRUGS (15)
  1. RIVOTRIL [Suspect]
     Route: 065
  2. RIVOTRIL [Suspect]
     Route: 065
  3. DEXTROMETHORPHAN HYDROBROMIDE [Suspect]
     Route: 065
  4. DEXTROMETHORPHAN HYDROBROMIDE [Suspect]
     Dosage: LOWER DOSAGE. GIVEN AT 8.00, 12.00 AND 20.00 HOURS.
     Route: 065
  5. REDOMEX [Suspect]
     Dosage: GIVEN IN THE EVENING.
     Route: 065
  6. REDOMEX [Suspect]
     Dosage: GIVEN AT 22.00 HOURS.
     Route: 065
  7. GUAIFENESIN [Concomitant]
     Dosage: TRADE NAME REPORTED AS ACATAR.
     Route: 065
  8. GUAIFENESIN [Concomitant]
     Dosage: GIVEN AT 08.00, 12.00, AND 20.00 HOURS. DRUG REPORTED AS GUAIFENESINE.
     Route: 065
  9. PALLADONE [Concomitant]
  10. PALLADONE [Concomitant]
     Dosage: GIVEN AT 09.00, 14.00, AND 20.00 HOURS.
  11. NEURONTIN [Concomitant]
  12. NEURONTIN [Concomitant]
     Dosage: GIVEN AS 1200 MG AT 09.00 AND 600 MG AT 17.00 HOURS.
  13. MIXTARD HUMAN 70/30 [Concomitant]
     Indication: DIABETES MELLITUS
     Dosage: GIVEN AS 25 IU IN THE MORNING AND 11 IU IN THE EVENING.
     Route: 058
  14. DAFALGAN [Concomitant]
  15. SEDERGINE [Concomitant]

REACTIONS (1)
  - DRUG TOXICITY [None]
